FAERS Safety Report 9523618 (Version 1)
Quarter: 2013Q3

REPORT INFORMATION
  Report Type: Report from Study
  Country: CH (occurrence: CH)
  Receive Date: 20130913
  Receipt Date: 20130913
  Transmission Date: 20140515
  Serious: Yes (Hospitalization, Other)
  Sender: FDA-Public Use
  Company Number: CH-VERTEX PHARMACEUTICALS INC-2013-009578

PATIENT
  Age: 45 Year
  Sex: Female

DRUGS (10)
  1. INCIVO [Suspect]
     Indication: CHRONIC HEPATITIS C
     Dosage: 750 MG, TID
     Route: 065
     Dates: start: 20120619, end: 20120817
  2. PEGASYS [Suspect]
     Indication: PRODUCT USED FOR UNKNOWN INDICATION
     Dosage: DOSAGE FORM: UNSPECIFIED
     Route: 065
     Dates: start: 20120619, end: 20120708
  3. PEGASYS [Suspect]
     Dosage: DOSAGE FORM: UNSPECIFIED
     Route: 065
     Dates: start: 20120709, end: 20120819
  4. PEGASYS [Suspect]
     Dosage: DOSAGE FORM: UNSPECIFIED
     Route: 065
     Dates: start: 20120820, end: 20120826
  5. PEGASYS [Suspect]
     Dosage: DOSAGE FORM: UNSPECIFIED
     Route: 065
     Dates: start: 20120827, end: 20120923
  6. PEGASYS [Suspect]
     Dosage: DOSAGE FORM: UNSPECIFIED
     Route: 065
     Dates: start: 20120924, end: 20121209
  7. COPEGUS [Suspect]
     Indication: PRODUCT USED FOR UNKNOWN INDICATION
     Dosage: DOSAGE FORM: UNSPECIFIED, 1000 MG DIVIDED INTO 600 MG AND 400 MG A DAY.
     Route: 065
     Dates: start: 20120619, end: 20120729
  8. COPEGUS [Suspect]
     Dosage: DOSAGE FORM: UNSPECIFIED, 600 MG DIVIDED INTO 400 MG AND 200 MG A DAY.
     Route: 065
     Dates: start: 20120730, end: 20120826
  9. COPEGUS [Suspect]
     Dosage: DOSAGE FORM: UNSPECIFIED, 800 MG DIVIDED INTO 400 MG AND 400 MG A DAY.
     Route: 065
     Dates: start: 20120827, end: 20121025
  10. COPEGUS [Suspect]
     Dosage: DOSAGE FORM: UNSPECIFIED
     Route: 065
     Dates: start: 20121026, end: 20121209

REACTIONS (9)
  - Neutropenia [Not Recovered/Not Resolved]
  - Depression [Unknown]
  - Hyperbilirubinaemia [Unknown]
  - Myalgia [Unknown]
  - Abdominal pain [Unknown]
  - Diarrhoea [Unknown]
  - Anaemia [Unknown]
  - Nausea [Unknown]
  - Pruritus [Unknown]
